FAERS Safety Report 23165287 (Version 1)
Quarter: 2023Q4

REPORT INFORMATION
  Report Type: Spontaneous
  Country: CN (occurrence: CN)
  Receive Date: 20231109
  Receipt Date: 20231109
  Transmission Date: 20240110
  Serious: Yes (Hospitalization, Other)
  Sender: FDA-Public Use
  Company Number: CN-009507513-2311CHN001381

PATIENT
  Sex: Male

DRUGS (1)
  1. PEMBROLIZUMAB [Suspect]
     Active Substance: PEMBROLIZUMAB
     Indication: Non-small cell lung cancer
     Dosage: UNK

REACTIONS (5)
  - Immune-mediated myocarditis [Recovered/Resolved]
  - Pneumonia [Unknown]
  - Immune-mediated myositis [Unknown]
  - Immune-mediated neuropathy [Unknown]
  - Immune-mediated encephalitis [Unknown]
